FAERS Safety Report 20023779 (Version 3)
Quarter: 2024Q4

REPORT INFORMATION
  Report Type: Report from Study
  Country: US (occurrence: US)
  Receive Date: 20211102
  Receipt Date: 20241224
  Transmission Date: 20250114
  Serious: Yes (Hospitalization, Other)
  Sender: JAZZ
  Company Number: US-JAZZ-2021-US-020333

PATIENT
  Sex: Female

DRUGS (16)
  1. XYREM [Suspect]
     Active Substance: SODIUM OXYBATE
     Indication: Narcolepsy
     Dosage: 2.25 GRAM, BID
     Route: 048
     Dates: start: 201501, end: 201501
  2. XYREM [Suspect]
     Active Substance: SODIUM OXYBATE
     Indication: Cataplexy
     Dosage: DOSE ADJUSTMENTS
     Route: 048
     Dates: start: 201501, end: 201702
  3. XYREM [Suspect]
     Active Substance: SODIUM OXYBATE
     Dosage: 3.75 GRAM, BID
     Route: 048
     Dates: start: 201702
  4. GABAPENTIN [Concomitant]
     Active Substance: GABAPENTIN
     Dosage: 0010
     Dates: start: 20090101
  5. MS CONTIN [Concomitant]
     Active Substance: MORPHINE SULFATE
     Dosage: 0010 QD
     Dates: start: 20090101
  6. PROAIR HFA [Concomitant]
     Active Substance: ALBUTEROL SULFATE
     Dosage: 0020
     Dates: start: 20090101
  7. EPIPEN [Concomitant]
     Active Substance: EPINEPHRINE
     Dosage: 0000
     Dates: start: 19760101
  8. FISH OIL [Concomitant]
     Active Substance: FISH OIL
     Dosage: 0020 QD
     Dates: start: 20040101
  9. FERROUS SULFATE [Concomitant]
     Active Substance: FERROUS SULFATE
     Dosage: 0010 QD
     Dates: start: 20040101
  10. REFRESH OPTIVE [Concomitant]
     Active Substance: CARBOXYMETHYLCELLULOSE SODIUM\GLYCERIN
     Dosage: 0020
     Dates: start: 20130101
  11. CELEBREX [Concomitant]
     Active Substance: CELECOXIB
     Dosage: 0010
     Dates: start: 20200205
  12. CLAVULANATE POTASSIUM [Concomitant]
     Active Substance: CLAVULANATE POTASSIUM
     Dosage: 0000
     Dates: start: 20210714
  13. FUROSEMIDE [Concomitant]
     Active Substance: FUROSEMIDE
     Dosage: 0000
     Dates: start: 20210714
  14. LISINOPRIL [Concomitant]
     Active Substance: LISINOPRIL
     Dosage: 0000
     Dates: start: 20210714
  15. HYDROXYCHLOROQUINE [Concomitant]
     Active Substance: HYDROXYCHLOROQUINE
     Dosage: UNK
     Dates: start: 20220401
  16. CALCIUM CITRATE [Concomitant]
     Active Substance: CALCIUM CITRATE
     Dosage: UNK
     Dates: start: 20210629

REACTIONS (5)
  - Lower limb fracture [Unknown]
  - Systemic lupus erythematosus [Unknown]
  - Accident [Unknown]
  - Intentional dose omission [Unknown]
  - Product administration interrupted [Unknown]

NARRATIVE: CASE EVENT DATE: 20210101
